FAERS Safety Report 13583142 (Version 4)
Quarter: 2018Q1

REPORT INFORMATION
  Report Type: Spontaneous
  Country: US (occurrence: US)
  Receive Date: 20170525
  Receipt Date: 20180313
  Transmission Date: 20180508
  Serious: Yes (Other)
  Sender: FDA-Public Use
  Company Number: US-JAZZ-2017-US-005558

PATIENT
  Sex: Female

DRUGS (38)
  1. ALBUTEROL SULFATE. [Concomitant]
     Active Substance: ALBUTEROL SULFATE
  2. DIPHENHYDRAMINE HYDROCHLORIDE. [Concomitant]
     Active Substance: DIPHENHYDRAMINE HYDROCHLORIDE
  3. TORADOL [Concomitant]
     Active Substance: KETOROLAC TROMETHAMINE
  4. TRAMADOL HCL [Concomitant]
     Active Substance: TRAMADOL HYDROCHLORIDE
  5. WESTHROID [Concomitant]
     Active Substance: THYROGLOBULIN
  6. CALCIUM CITRATE +D [Concomitant]
     Active Substance: CALCIUM CITRATE\VITAMIN D
  7. TRAZODONE [Concomitant]
     Active Substance: TRAZODONE HYDROCHLORIDE
  8. ARTHROTEC [Concomitant]
     Active Substance: DICLOFENAC SODIUM\MISOPROSTOL
  9. VERAPAMIL [Concomitant]
     Active Substance: VERAPAMIL HYDROCHLORIDE
  10. XYREM [Suspect]
     Active Substance: SODIUM OXYBATE
     Dosage: 4.5G, BID
     Route: 048
     Dates: start: 201209
  11. FOLIC ACID. [Concomitant]
     Active Substance: FOLIC ACID
  12. VITAMIN D3 [Concomitant]
     Active Substance: CHOLECALCIFEROL
  13. PHYTOMENADIONE [Concomitant]
     Active Substance: PHYTONADIONE
  14. ATIVAN [Concomitant]
     Active Substance: LORAZEPAM
  15. ASCORBIC ACID. [Concomitant]
     Active Substance: ASCORBIC ACID
  16. ZINC GLUCONATE [Concomitant]
     Active Substance: ZINC GLUCONATE
  17. KLONOPIN [Concomitant]
     Active Substance: CLONAZEPAM
  18. XYREM [Suspect]
     Active Substance: SODIUM OXYBATE
     Indication: NARCOLEPSY
     Dosage: 2.25G, BID
     Route: 048
     Dates: start: 201203, end: 201204
  19. PROCHLORPERAZINE EDISYLATE. [Concomitant]
     Active Substance: PROCHLORPERAZINE EDISYLATE
  20. IODINE. [Concomitant]
     Active Substance: IODINE
  21. PROPRANOLOL [Concomitant]
     Active Substance: PROPRANOLOL HYDROCHLORIDE
  22. DEMEROL [Concomitant]
     Active Substance: MEPERIDINE HYDROCHLORIDE
  23. PROMETHAZINE [Concomitant]
     Active Substance: PROMETHAZINE\PROMETHAZINE HYDROCHLORIDE
  24. METHOCARBAMOL. [Concomitant]
     Active Substance: METHOCARBAMOL
  25. MAGNESIUM CITRATE. [Concomitant]
     Active Substance: MAGNESIUM CITRATE
  26. CALCARB [Concomitant]
  27. VERAPAMIL HYDROCHLORIDE. [Concomitant]
     Active Substance: VERAPAMIL HYDROCHLORIDE
  28. MINIVELLE [Concomitant]
     Active Substance: ESTRADIOL
  29. SELENIUM [Concomitant]
     Active Substance: SELENIUM
  30. SPIRONOLACTONE. [Concomitant]
     Active Substance: SPIRONOLACTONE
  31. ZINC ACETATE [Concomitant]
     Active Substance: ZINC ACETATE
  32. CAMBIA [Concomitant]
     Active Substance: DICLOFENAC POTASSIUM
  33. XYREM [Suspect]
     Active Substance: SODIUM OXYBATE
     Dosage: 3G, BID
     Route: 048
     Dates: start: 201204, end: 201209
  34. CHROMIUM PICOLINAT [Concomitant]
  35. MAGNESIUM [Concomitant]
     Active Substance: MAGNESIUM
  36. NATURE-THROID [Concomitant]
     Active Substance: THYROID, PORCINE
  37. XANAX [Concomitant]
     Active Substance: ALPRAZOLAM
  38. MELATONIN [Concomitant]
     Active Substance: MELATONIN

REACTIONS (5)
  - Therapeutic procedure [Unknown]
  - Hepatic steatosis [Recovered/Resolved]
  - Gastritis [Not Recovered/Not Resolved]
  - Spinal disorder [Not Recovered/Not Resolved]
  - Muscle spasms [Not Recovered/Not Resolved]
